FAERS Safety Report 8393005-X (Version None)
Quarter: 2012Q2

REPORT INFORMATION
  Report Type: 
  Country: None (occurrence: None)
  Receive Date: 20120529
  Receipt Date: 20120312
  Transmission Date: 20120825
  Serious: No
  Sender: FDA-Public Use
  Company Number: US-ABBOTT-12P-163-0914902-00

PATIENT
  Sex: Male

DRUGS (7)
  1. LIDODERM [Concomitant]
     Indication: PAIN
     Dosage: PATCH
  2. LYRICA [Concomitant]
     Indication: FIBROMYALGIA
  3. PERCOCET [Concomitant]
     Indication: PAIN
  4. ZOLOFT [Concomitant]
     Indication: PRODUCT USED FOR UNKNOWN INDICATION
  5. MORPHINE [Concomitant]
     Indication: PAIN
  6. ANDROGEL [Suspect]
     Indication: BLOOD TESTOSTERONE DECREASED
     Dates: start: 20120307
  7. XANAX [Concomitant]
     Indication: PRODUCT USED FOR UNKNOWN INDICATION

REACTIONS (2)
  - PAIN [None]
  - CONFUSIONAL STATE [None]
